FAERS Safety Report 11570363 (Version 2)
Quarter: 2015Q3

REPORT INFORMATION
  Report Type: Spontaneous
  Country: US (occurrence: US)
  Receive Date: 20150929
  Receipt Date: 20150930
  Transmission Date: 20151125
  Serious: No
  Sender: FDA-Public Use
  Company Number: US-009507513-1509USA013461

PATIENT
  Sex: Male

DRUGS (3)
  1. CLOBETASOL PROPIONATE. [Suspect]
     Active Substance: CLOBETASOL PROPIONATE
     Dosage: UNKNOWN
  2. HEXADROL [Suspect]
     Active Substance: DEXAMETHASONE
     Dosage: UNKNOWN
  3. DIPROLENE AF [Suspect]
     Active Substance: BETAMETHASONE DIPROPIONATE
     Dosage: UNKNOWN

REACTIONS (1)
  - Drug ineffective [Unknown]
